FAERS Safety Report 17391682 (Version 1)
Quarter: 2020Q1

REPORT INFORMATION
  Report Type: Spontaneous
  Country: DE (occurrence: DE)
  Receive Date: 20200207
  Receipt Date: 20200207
  Transmission Date: 20200409
  Serious: Yes (Other)
  Sender: FDA-Public Use
  Company Number: DE-INSUD PHARMA-2002DE00017

PATIENT
  Age: 19 Year
  Sex: Female
  Weight: 62 kg

DRUGS (1)
  1. ALTAVERA [Suspect]
     Active Substance: ETHINYL ESTRADIOL\LEVONORGESTREL
     Indication: CONTRACEPTION
     Dosage: 1 TABLET EVERY DAY
     Route: 048
     Dates: start: 20151101, end: 20160829

REACTIONS (9)
  - Cerebrovascular accident [Recovered/Resolved with Sequelae]
  - Cerebral infarction [Recovered/Resolved with Sequelae]
  - Anxiety disorder [Not Recovered/Not Resolved]
  - Panic attack [Not Recovered/Not Resolved]
  - Partial seizures [Unknown]
  - Dizziness [Recovered/Resolved]
  - Speech disorder [Recovered/Resolved]
  - Feeling abnormal [Recovered/Resolved]
  - Hemiparesis [Recovered/Resolved]

NARRATIVE: CASE EVENT DATE: 201608
